FAERS Safety Report 15682327 (Version 1)
Quarter: 2018Q4

REPORT INFORMATION
  Report Type: Report from Study
  Country: US (occurrence: US)
  Receive Date: 20181203
  Receipt Date: 20181203
  Transmission Date: 20190205
  Serious: Yes (Death)
  Sender: FDA-Public Use
  Company Number: US-PFIZER INC-2015060159

PATIENT

DRUGS (4)
  1. FLAVOPIRIDOL [Suspect]
     Active Substance: ALVOCIDIB
     Dosage: 60 MG/M2, CYCLIC (OVER 4 HOURS IV PER DAY FOR 3 DAYS)
     Route: 042
  2. MITOXANTRONE HCL [Suspect]
     Active Substance: MITOXANTRONE HYDROCHLORIDE
     Indication: ACUTE MYELOID LEUKAEMIA
     Dosage: 40 MG/M2, CYCLIC, OVER 1-2 HOURS (DAY 9)
     Route: 042
  3. CYTARABINE. [Suspect]
     Active Substance: CYTARABINE
     Indication: ACUTE MYELOID LEUKAEMIA
     Dosage: 667 MG/M2, CYCLIC, OVER 24 HOURS BY CONTINUOUS INFUSION FOR 3 DAYS (DAYS 6-8)
     Route: 041
  4. FLAVOPIRIDOL [Suspect]
     Active Substance: ALVOCIDIB
     Indication: ACUTE MYELOID LEUKAEMIA
     Dosage: 30 MG/M2, CYCLIC, FOR ONE-HALF HOUR ON DAY 1-3
     Route: 040

REACTIONS (1)
  - Sepsis [Fatal]
